FAERS Safety Report 5571219-1 (Version None)
Quarter: 2007Q4

REPORT INFORMATION
  Report Type: 
  Country: None (occurrence: None)
  Receive Date: 20071221
  Receipt Date: 20070219
  Transmission Date: 20080405
  Serious: No
  Sender: FDA-Public Use
  Company Number: A0640072A

PATIENT
  Age: 35 Year
  Sex: Male

DRUGS (2)
  1. FLONASE [Suspect]
     Dosage: 2SPR PER DAY
     Route: 045
     Dates: start: 20061101
  2. MOTRIN [Concomitant]

REACTIONS (1)
  - DRUG INEFFECTIVE [None]
